FAERS Safety Report 24266486 (Version 1)
Quarter: 2024Q3

REPORT INFORMATION
  Report Type: Spontaneous
  Country: US (occurrence: US)
  Receive Date: 20240830
  Receipt Date: 20240830
  Transmission Date: 20241017
  Serious: Yes (Hospitalization)
  Sender: RIGEL PHARMACEUTICALS
  Company Number: US-RIGEL Pharmaceuticals, INC-20240700120

PATIENT
  Sex: Female
  Weight: 103.42 kg

DRUGS (3)
  1. REZLIDHIA [Suspect]
     Active Substance: OLUTASIDENIB
     Indication: 5q minus syndrome
     Dosage: 150 MG, BID
     Route: 048
     Dates: start: 20240222, end: 2024
  2. REZLIDHIA [Suspect]
     Active Substance: OLUTASIDENIB
     Dosage: 150 MG, BID
     Route: 048
     Dates: start: 2024
  3. TIBSOVO [Concomitant]
     Active Substance: IVOSIDENIB
     Indication: Myelodysplastic syndrome
     Dosage: 250 MG, QD
     Route: 048
     Dates: start: 20221128

REACTIONS (5)
  - Pneumonia [Unknown]
  - COVID-19 [Unknown]
  - Off label use [Unknown]
  - Foreign body in eye [Unknown]
  - Eye pain [Unknown]

NARRATIVE: CASE EVENT DATE: 20240101
